FAERS Safety Report 26000690 (Version 2)
Quarter: 2025Q4

REPORT INFORMATION
  Report Type: Spontaneous
  Country: EU (occurrence: EU)
  Receive Date: 20251105
  Receipt Date: 20251113
  Transmission Date: 20260118
  Serious: Yes (Hospitalization, Other)
  Sender: SANOFI AVENTIS
  Company Number: None

PATIENT
  Age: 68 Year
  Sex: Female

DRUGS (4)
  1. PREDNISONE [Suspect]
     Active Substance: PREDNISONE
     Indication: Rheumatoid arthritis
     Dosage: 5MG 1/2-0-0
     Route: 048
     Dates: start: 20180803, end: 20250902
  2. LEFLUNOMIDE [Suspect]
     Active Substance: LEFLUNOMIDE
     Indication: Rheumatoid arthritis
     Dosage: 10MG 1-0-0
     Route: 048
     Dates: start: 20200113, end: 20250902
  3. CALCIFEDIOL [Suspect]
     Active Substance: CALCIFEDIOL
     Dosage: 0.266
  4. GLYCOPYRRONIUM\INDACATEROL [Suspect]
     Active Substance: GLYCOPYRRONIUM\INDACATEROL
     Dosage: 85/43 1-0-0

REACTIONS (4)
  - Respiratory tract infection [Recovered/Resolved]
  - Acute respiratory failure [Unknown]
  - Chronic obstructive pulmonary disease [Unknown]
  - Escherichia infection [Unknown]

NARRATIVE: CASE EVENT DATE: 20250101
